FAERS Safety Report 8402470 (Version 4)
Quarter: 2013Q1

REPORT INFORMATION
  Report Type: Spontaneous
  Country: IN (occurrence: IN)
  Receive Date: 20120213
  Receipt Date: 20130122
  Transmission Date: 20140127
  Serious: Yes (Death, Other)
  Sender: FDA-Public Use
  Company Number: IN-PFIZER INC-2012036346

PATIENT
  Age: 33 Year
  Sex: Male

DRUGS (1)
  1. SUTENT [Suspect]
     Indication: GASTROINTESTINAL STROMAL TUMOUR
     Dosage: 50 MG, 1X/DAY
     Route: 048
     Dates: start: 20120206

REACTIONS (9)
  - Death [Fatal]
  - Gastric ulcer [Recovering/Resolving]
  - Tongue disorder [Recovering/Resolving]
  - Glossodynia [Recovering/Resolving]
  - Dysphagia [Recovering/Resolving]
  - Furuncle [Recovering/Resolving]
  - Disease progression [Unknown]
  - Gastrointestinal stromal tumour [Unknown]
  - Dyspnoea [Not Recovered/Not Resolved]
